FAERS Safety Report 7088882-9 (Version None)
Quarter: 2010Q4

REPORT INFORMATION
  Report Type: 
  Country: None (occurrence: None)
  Receive Date: 20101108
  Receipt Date: 20101028
  Transmission Date: 20110411
  Serious: Yes (Hospitalization)
  Sender: FDA-Public Use
  Company Number: HU-ASTRAZENECA-2010SE52058

PATIENT
  Age: 52 Year
  Sex: Female

DRUGS (2)
  1. TRIPTORELIN [Suspect]
     Indication: BREAST CANCER
     Route: 030
     Dates: start: 20050824, end: 20090602
  2. NOLVADEX [Suspect]
     Indication: BREAST CANCER
     Route: 048
     Dates: start: 20050824

REACTIONS (2)
  - OVARIAN CYST [None]
  - UTERINE LEIOMYOMA [None]
